FAERS Safety Report 19716597 (Version 1)
Quarter: 2021Q3

REPORT INFORMATION
  Report Type: Spontaneous
  Country: US (occurrence: US)
  Receive Date: 20210819
  Receipt Date: 20210819
  Transmission Date: 20211014
  Serious: No
  Sender: FDA-Public Use
  Company Number: US-CELLTRION INC.-2021US009684

PATIENT

DRUGS (1)
  1. TRUXIMA [Suspect]
     Active Substance: RITUXIMAB-ABBS
     Indication: ANTINEUTROPHIL CYTOPLASMIC ANTIBODY
     Dosage: 1000 MG DAY 1 AND DAY 15 Q4?6MONTHS
     Dates: start: 20210715

REACTIONS (2)
  - Off label use [Unknown]
  - Overdose [Unknown]
